FAERS Safety Report 12012456 (Version 4)
Quarter: 2017Q2

REPORT INFORMATION
  Report Type: Report from Study
  Country: GB (occurrence: GB)
  Receive Date: 20160205
  Receipt Date: 20170511
  Transmission Date: 20170829
  Serious: Yes (Hospitalization)
  Sender: FDA-Public Use
  Company Number: GB-SEATTLE GENETICS-2016SGN00135

PATIENT
  Age: 35 Year
  Sex: Male
  Weight: 78.3 kg

DRUGS (4)
  1. DOXORUBICIN [Suspect]
     Active Substance: DOXORUBICIN
     Indication: HODGKIN^S DISEASE
     Dosage: 53 MG, 2/WEEK
     Route: 042
     Dates: start: 20151102, end: 20160111
  2. DACARBAZINE. [Suspect]
     Active Substance: DACARBAZINE
     Indication: HODGKIN^S DISEASE
     Dosage: 790 MG, UNK
     Route: 042
     Dates: start: 20151102, end: 20160111
  3. VINBLASTINE [Suspect]
     Active Substance: VINBLASTINE
     Indication: HODGKIN^S DISEASE
     Dosage: 13 MG, 2/WEEK
     Route: 042
     Dates: start: 20151102, end: 20160111
  4. BRENTUXIMAB VEDOTIN [Suspect]
     Active Substance: BRENTUXIMAB VEDOTIN
     Indication: HODGKIN^S DISEASE
     Dosage: UNK UNK, 2/WEEK
     Route: 042
     Dates: start: 20151102, end: 20160111

REACTIONS (1)
  - Pneumocystis jirovecii pneumonia [Recovered/Resolved with Sequelae]

NARRATIVE: CASE EVENT DATE: 20160123
